FAERS Safety Report 9213767 (Version 1)
Quarter: 2013Q2

REPORT INFORMATION
  Report Type: Spontaneous
  Country: US (occurrence: US)
  Receive Date: 20130405
  Receipt Date: 20130405
  Transmission Date: 20140414
  Serious: No
  Sender: FDA-Public Use
  Company Number: US-PFIZER INC-2013106545

PATIENT
  Age: 55 Year
  Sex: Male
  Weight: 68.48 kg

DRUGS (3)
  1. LYRICA [Suspect]
     Indication: PAIN
     Dosage: 225 MG, 2X/DAY
     Dates: start: 2012, end: 20130322
  2. METHADONE [Suspect]
     Indication: PAIN
     Dosage: 80 MG DAILY
     Dates: end: 2012
  3. TEGRETOL [Concomitant]
     Indication: CONVULSION
     Dosage: 200 MG, 4X/DAY

REACTIONS (6)
  - Arthritis [Unknown]
  - Osteoporosis [Unknown]
  - Drug ineffective [Unknown]
  - Drug intolerance [Unknown]
  - Increased appetite [Unknown]
  - Pain [Unknown]
